FAERS Safety Report 24004800 (Version 1)
Quarter: 2024Q2

REPORT INFORMATION
  Report Type: Spontaneous
  Country: US (occurrence: None)
  Receive Date: 20240621
  Receipt Date: 20240621
  Transmission Date: 20240716
  Serious: Yes (Death)
  Sender: FDA-Public Use
  Company Number: None

PATIENT
  Age: 59 Year
  Sex: Male
  Weight: 57 kg

DRUGS (2)
  1. CREON [Suspect]
     Active Substance: PANCRELIPASE AMYLASE\PANCRELIPASE LIPASE\PANCRELIPASE PROTEASE
     Indication: Pancreatic enzymes decreased
     Dosage: 24000 IU INTERNATIONAL UNIT(S) 3 TIMES A DAY ORAL
     Route: 048
     Dates: start: 20240528, end: 20240620
  2. OXYCODONE [Concomitant]
     Dates: start: 20240528, end: 20240620

REACTIONS (2)
  - Metastatic neoplasm [None]
  - Malignant neoplasm progression [None]

NARRATIVE: CASE EVENT DATE: 20240620
